FAERS Safety Report 9670931 (Version 1)
Quarter: 2013Q4

REPORT INFORMATION
  Report Type: Report from Study
  Country: JP (occurrence: JP)
  Receive Date: 20131106
  Receipt Date: 20131106
  Transmission Date: 20140711
  Serious: Yes (Hospitalization)
  Sender: FDA-Public Use
  Company Number: JP-JNJFOC-20131018596

PATIENT
  Age: 67 Year
  Sex: Male
  Weight: 69 kg

DRUGS (12)
  1. STELARA [Suspect]
     Indication: PSORIASIS
     Route: 058
     Dates: start: 20130703, end: 20130703
  2. STELARA [Suspect]
     Indication: PSORIASIS
     Route: 058
     Dates: start: 20121130, end: 20121130
  3. STELARA [Suspect]
     Indication: PSORIASIS
     Route: 058
     Dates: start: 20130222, end: 20130222
  4. STELARA [Suspect]
     Indication: PSORIASIS
     Route: 058
     Dates: start: 20120803, end: 20120803
  5. STELARA [Suspect]
     Indication: PSORIASIS
     Route: 058
     Dates: start: 20120831, end: 20120831
  6. STELARA [Suspect]
     Indication: PSORIASIS
     Route: 058
     Dates: start: 20121208, end: 20121208
  7. ISCOTIN [Concomitant]
     Indication: PROPHYLAXIS
     Route: 048
     Dates: start: 20120803, end: 20121130
  8. URSO [Concomitant]
     Indication: PROPHYLAXIS
     Route: 048
     Dates: start: 20120803, end: 20121130
  9. BONALFA [Concomitant]
     Indication: PSORIASIS
     Route: 061
     Dates: start: 20120710, end: 20130222
  10. OXAROL [Concomitant]
     Indication: PSORIASIS
     Route: 061
     Dates: start: 20070426, end: 20130222
  11. ANTEBATE [Concomitant]
     Indication: PSORIASIS
     Route: 061
     Dates: start: 20070426, end: 20130222
  12. PROTOPIC [Concomitant]
     Indication: PSORIASIS
     Route: 061
     Dates: start: 20120710, end: 20130703

REACTIONS (1)
  - Pneumonia [Unknown]
